FAERS Safety Report 5782676-X (Version None)
Quarter: 2008Q2

REPORT INFORMATION
  Report Type: 
  Country: None (occurrence: None)
  Receive Date: 20080624
  Receipt Date: 20080620
  Transmission Date: 20081010
  Serious: Yes (Life-Threatening)
  Sender: FDA-Public Use
  Company Number: PHHY2008TR11203

PATIENT

DRUGS (4)
  1. TEGRETOL [Suspect]
     Indication: GLIOBLASTOMA
     Dosage: 400 MG, BID
     Route: 048
     Dates: start: 20080201
  2. TEGRETOL [Suspect]
     Indication: EPILEPSY
  3. TEMODAL [Suspect]
     Indication: GLIOBLASTOMA
     Dosage: 105 MG
     Route: 048
     Dates: start: 20080318, end: 20080505
  4. DEKORT [Concomitant]
     Indication: OEDEMA
     Dosage: 2X4 MG
     Route: 030
     Dates: start: 20080201

REACTIONS (7)
  - ALANINE AMINOTRANSFERASE INCREASED [None]
  - ANTICONVULSANT DRUG LEVEL INCREASED [None]
  - ASPARTATE AMINOTRANSFERASE INCREASED [None]
  - BLOOD BILIRUBIN INCREASED [None]
  - BLOOD LACTATE DEHYDROGENASE [None]
  - GAMMA-GLUTAMYLTRANSFERASE INCREASED [None]
  - HEPATITIS TOXIC [None]
